FAERS Safety Report 10068836 (Version 1)
Quarter: 2014Q2

REPORT INFORMATION
  Report Type: Spontaneous
  Country: DE (occurrence: DE)
  Receive Date: 20140409
  Receipt Date: 20140409
  Transmission Date: 20141212
  Serious: Yes (Hospitalization)
  Sender: FDA-Public Use
  Company Number: DE-ABBVIE-14P-062-1222398-00

PATIENT
  Sex: Female
  Weight: 73 kg

DRUGS (3)
  1. RITONAVIR [Suspect]
     Indication: HIV INFECTION
     Dates: start: 20040726
  2. ATAZANAVIR [Suspect]
     Indication: HIV INFECTION
     Dates: start: 20040726
  3. TENOFOVIR [Concomitant]
     Indication: HIV INFECTION
     Dates: start: 20040726

REACTIONS (1)
  - Ulna fracture [Recovered/Resolved]
